FAERS Safety Report 4960005-9 (Version None)
Quarter: 2006Q1

REPORT INFORMATION
  Report Type: 
  Country: None (occurrence: None)
  Receive Date: 20060331
  Receipt Date: 20051004
  Transmission Date: 20060701
  Serious: Yes (Hospitalization, Other)
  Sender: FDA-Public Use
  Company Number: US-MERCK-0510USA02608

PATIENT
  Age: 43 Year
  Sex: Male
  Weight: 64 kg

DRUGS (1)
  1. VIOXX [Suspect]
     Indication: ARTHRITIS
     Route: 048
     Dates: start: 20020201, end: 20020601

REACTIONS (6)
  - ANXIETY [None]
  - CEREBROVASCULAR ACCIDENT [None]
  - DEPRESSION [None]
  - HYPERTENSION [None]
  - ISCHAEMIC STROKE [None]
  - MYOCARDIAL INFARCTION [None]
